FAERS Safety Report 8598054-4 (Version None)
Quarter: 2012Q3

REPORT INFORMATION
  Report Type: 
  Country: None (occurrence: None)
  Receive Date: 20120816
  Receipt Date: 20120808
  Transmission Date: 20120928
  Serious: Yes (Other)
  Sender: FDA-Public Use
  Company Number: IT-PFIZER INC-2012194458

PATIENT
  Age: 67 Year
  Sex: Female

DRUGS (2)
  1. CORDARONE [Suspect]
     Indication: CHEST PAIN
  2. CORDARONE [Suspect]
     Indication: TACHYCARDIA PAROXYSMAL
     Dosage: 400MG, DAILY
     Route: 065
     Dates: start: 19760101, end: 19830501

REACTIONS (2)
  - RETINOPATHY [None]
  - PIGMENTATION DISORDER [None]
